FAERS Safety Report 19104267 (Version 2)
Quarter: 2021Q2

REPORT INFORMATION
  Report Type: Spontaneous
  Country: DK (occurrence: DK)
  Receive Date: 20210407
  Receipt Date: 20210426
  Transmission Date: 20210717
  Serious: Yes (Death, Other)
  Sender: FDA-Public Use
  Company Number: DK-ASTRAZENECA-2021A239481

PATIENT
  Age: 57 Year
  Sex: Female

DRUGS (5)
  1. CARBOPLATIN. [Concomitant]
     Active Substance: CARBOPLATIN
     Indication: CHEMOTHERAPY
     Dosage: 3 CYCLES
     Route: 065
  2. OSIMERTINIB. [Suspect]
     Active Substance: OSIMERTINIB
     Indication: NON-SMALL CELL LUNG CANCER
     Dosage: 2 ND LINE
     Route: 048
  3. ETOPOSIDE. [Concomitant]
     Active Substance: ETOPOSIDE
     Indication: CHEMOTHERAPY
     Dosage: 3 CYCLES
     Route: 065
  4. PEMETREXED. [Concomitant]
     Active Substance: PEMETREXED
     Indication: CHEMOTHERAPY
     Dosage: 3 CYCLES
     Route: 065
  5. GEFITINIB. [Suspect]
     Active Substance: GEFITINIB
     Route: 048

REACTIONS (8)
  - Acquired gene mutation [Unknown]
  - Death [Fatal]
  - EGFR gene mutation [Unknown]
  - Malignant neoplasm progression [Unknown]
  - Malignant transformation [Unknown]
  - Pulmonary embolism [Unknown]
  - Drug resistance [Unknown]
  - Small cell carcinoma [Unknown]
